FAERS Safety Report 4951343-4 (Version None)
Quarter: 2006Q1

REPORT INFORMATION
  Report Type: 
  Country: None (occurrence: None)
  Receive Date: 20060316
  Receipt Date: 20060303
  Transmission Date: 20060701
  Serious: Yes (Hospitalization)
  Sender: FDA-Public Use
  Company Number: 2006-DE-01212GD

PATIENT
  Age: 92 Year
  Sex: Female

DRUGS (3)
  1. ASPIRIN [Suspect]
     Indication: PAIN
     Dosage: 1500 MG (THREE TIMES A DAY)
  2. NAPROXEN [Suspect]
     Indication: OSTEOARTHRITIS
     Dosage: 1000 MG (TWICE A DAY)
  3. DIGOXIN [Concomitant]

REACTIONS (5)
  - ARTHRALGIA [None]
  - CONDITION AGGRAVATED [None]
  - GASTRITIS HAEMORRHAGIC [None]
  - INTENTIONAL DRUG MISUSE [None]
  - SHOCK [None]
